FAERS Safety Report 7201966-7 (Version None)
Quarter: 2010Q4

REPORT INFORMATION
  Report Type: 
  Country: None (occurrence: None)
  Receive Date: 20101229
  Receipt Date: 20101221
  Transmission Date: 20110411
  Serious: Yes (Other)
  Sender: FDA-Public Use
  Company Number: US-US-EMD SERONO, INC.-231422K08USA

PATIENT
  Sex: Female
  Weight: 50 kg

DRUGS (3)
  1. REBIF [Suspect]
     Indication: MULTIPLE SCLEROSIS
     Route: 058
     Dates: start: 20070822
  2. ORAL CONTRACEPTIVE [Concomitant]
     Indication: CONTRACEPTION
  3. MULTI-VITAMIN [Concomitant]

REACTIONS (5)
  - GINGIVAL EROSION [None]
  - GINGIVAL RECESSION [None]
  - HYPERSENSITIVITY [None]
  - IMPAIRED HEALING [None]
  - PAIN [None]
